FAERS Safety Report 13677399 (Version 1)
Quarter: 2017Q2

REPORT INFORMATION
  Report Type: Spontaneous
  Country: FR (occurrence: FR)
  Receive Date: 20170622
  Receipt Date: 20170622
  Transmission Date: 20170830
  Serious: Yes (Other)
  Sender: FDA-Public Use
  Company Number: FR-009507513-1706FRA007473

PATIENT
  Age: 53 Year
  Sex: Female

DRUGS (2)
  1. NASONEX [Suspect]
     Active Substance: MOMETASONE FUROATE
     Dosage: UNK
     Dates: end: 20170614
  2. DEPAKINE [Concomitant]
     Active Substance: VALPROATE SODIUM
     Indication: EPILEPSY

REACTIONS (1)
  - Epilepsy [Unknown]

NARRATIVE: CASE EVENT DATE: 20170614
